FAERS Safety Report 4438602-9 (Version None)
Quarter: 2004Q3

REPORT INFORMATION
  Report Type: 
  Country: None (occurrence: None)
  Receive Date: 20040728
  Receipt Date: 20040224
  Transmission Date: 20050211
  Serious: No
  Sender: FDA-Public Use
  Company Number: USA040260146

PATIENT
  Age: 7 Year
  Sex: Male
  Weight: 23 kg

DRUGS (2)
  1. STRATTERA [Suspect]
     Indication: FEELING ABNORMAL
     Dosage: 40 MG/1 IN THE MORNING
     Dates: start: 20040101
  2. ADDERALL 10 [Concomitant]

REACTIONS (4)
  - DRUG INEFFECTIVE [None]
  - IMPULSIVE BEHAVIOUR [None]
  - PRESCRIBED OVERDOSE [None]
  - WEIGHT INCREASED [None]
